FAERS Safety Report 14476102 (Version 1)
Quarter: 2018Q1

REPORT INFORMATION
  Report Type: Spontaneous
  Country: US (occurrence: US)
  Receive Date: 20180201
  Receipt Date: 20180201
  Transmission Date: 20180509
  Serious: Yes (Death, Life-Threatening)
  Sender: FDA-Public Use
  Company Number: None

PATIENT
  Age: 78 Year
  Sex: Female
  Weight: 76.7 kg

DRUGS (1)
  1. ENOXAPARIN, 80 MG [Suspect]
     Active Substance: ENOXAPARIN
     Indication: PULMONARY EMBOLISM
     Route: 058
     Dates: start: 20180125, end: 20180130

REACTIONS (3)
  - Shock haemorrhagic [None]
  - Abdominal wall haematoma [None]
  - Drug level above therapeutic [None]

NARRATIVE: CASE EVENT DATE: 20180130
